FAERS Safety Report 20516465 (Version 3)
Quarter: 2022Q1

REPORT INFORMATION
  Report Type: Spontaneous
  Country: US (occurrence: US)
  Receive Date: 20220225
  Receipt Date: 20220301
  Transmission Date: 20220423
  Serious: No
  Sender: FDA-Public Use
  Company Number: US-GLAXOSMITHKLINE-US2022034669

PATIENT
  Age: 47 Year
  Sex: Female

DRUGS (1)
  1. FLONASE [Suspect]
     Active Substance: FLUTICASONE PROPIONATE
     Indication: Nasal congestion
     Dosage: UNK, 144 SPRAYS TWIN PACK
     Dates: start: 20220214

REACTIONS (1)
  - Drug ineffective [Unknown]
